FAERS Safety Report 9821147 (Version 4)
Quarter: 2018Q3

REPORT INFORMATION
  Report Type: Spontaneous
  Country: US (occurrence: US)
  Receive Date: 20140116
  Receipt Date: 20180927
  Transmission Date: 20181010
  Serious: Yes (Hospitalization, Other)
  Sender: FDA-Public Use
  Company Number: US-PFIZER INC-2014013239

PATIENT
  Age: 63 Year
  Sex: Female
  Weight: 82.86 kg

DRUGS (2)
  1. LYRICA [Suspect]
     Active Substance: PREGABALIN
     Indication: DIABETIC NEUROPATHY
     Dosage: 300 MG, 2X/DAY (ONE IN THE AM, AND ONE IN THE PM)
  2. LYRICA [Suspect]
     Active Substance: PREGABALIN
     Indication: NEUROPATHY PERIPHERAL
     Dosage: 300 MG, 3X/DAY

REACTIONS (10)
  - Overdose [Unknown]
  - Burning sensation [Not Recovered/Not Resolved]
  - Chronic obstructive pulmonary disease [Recovered/Resolved]
  - Feeling abnormal [Unknown]
  - Diabetes mellitus [Unknown]
  - Insomnia [Not Recovered/Not Resolved]
  - Myocardial infarction [Recovered/Resolved]
  - Weight decreased [Unknown]
  - Condition aggravated [Recovered/Resolved]
  - Dyspnoea [Unknown]

NARRATIVE: CASE EVENT DATE: 20170625
